FAERS Safety Report 9757908 (Version 3)
Quarter: 2014Q2

REPORT INFORMATION
  Report Type: Report from Study
  Country: PT (occurrence: PT)
  Receive Date: 20131216
  Receipt Date: 20140429
  Transmission Date: 20141212
  Serious: Yes (Life-Threatening, Hospitalization)
  Sender: FDA-Public Use
  Company Number: PT-ROCHE-1320471

PATIENT
  Age: 81 Year
  Sex: Female

DRUGS (7)
  1. RANIBIZUMAB [Suspect]
     Indication: PRODUCT USED FOR UNKNOWN INDICATION
     Route: 050
     Dates: start: 20120718
  2. RANIBIZUMAB [Suspect]
     Route: 050
     Dates: start: 20131031
  3. ASPIRIN [Concomitant]
     Route: 065
     Dates: start: 2002
  4. LANITOP [Concomitant]
     Route: 065
     Dates: start: 1992
  5. IMDUR [Concomitant]
     Route: 065
     Dates: start: 2002
  6. LASIX [Concomitant]
     Route: 065
     Dates: start: 2002
  7. COVERSYL NOVUM [Concomitant]
     Route: 065
     Dates: start: 2007

REACTIONS (2)
  - Cerebrovascular accident [Unknown]
  - Age-related macular degeneration [Unknown]
